FAERS Safety Report 19612891 (Version 16)
Quarter: 2024Q2

REPORT INFORMATION
  Report Type: Spontaneous
  Country: US (occurrence: US)
  Receive Date: 20210727
  Receipt Date: 20240614
  Transmission Date: 20240716
  Serious: No
  Sender: FDA-Public Use
  Company Number: US-DSJP-DSU-2021-123347

PATIENT
  Sex: Female

DRUGS (3)
  1. TURALIO [Suspect]
     Active Substance: PEXIDARTINIB HYDROCHLORIDE
     Indication: Connective tissue neoplasm
     Dosage: 200 MG, BID
     Route: 048
     Dates: start: 20210712
  2. TURALIO [Suspect]
     Active Substance: PEXIDARTINIB HYDROCHLORIDE
     Indication: Soft tissue neoplasm
     Dosage: 200 MG, BID
     Route: 048
     Dates: start: 20210712
  3. TURALIO [Suspect]
     Active Substance: PEXIDARTINIB HYDROCHLORIDE
     Indication: Giant cell tumour of tendon sheath
     Dosage: 125 MG, BID
     Route: 048
     Dates: start: 20221017

REACTIONS (18)
  - Dizziness [Recovered/Resolved]
  - Seasonal allergy [Recovered/Resolved]
  - Nasopharyngitis [Recovered/Resolved]
  - Illness [Recovered/Resolved]
  - Seborrhoea [Not Recovered/Not Resolved]
  - Arthralgia [Not Recovered/Not Resolved]
  - Bronchitis viral [Recovered/Resolved]
  - Dizziness [Not Recovered/Not Resolved]
  - Cervicogenic headache [Not Recovered/Not Resolved]
  - White blood cell count decreased [Recovered/Resolved]
  - Hypertension [Recovered/Resolved]
  - Fatigue [Recovered/Resolved]
  - Pruritus [Recovered/Resolved]
  - Pruritus [Recovering/Resolving]
  - Malaise [Not Recovered/Not Resolved]
  - Hair colour changes [Not Recovered/Not Resolved]
  - Erythema [Not Recovered/Not Resolved]
  - Rash [Recovered/Resolved]

NARRATIVE: CASE EVENT DATE: 20210101
